FAERS Safety Report 8441125-3 (Version None)
Quarter: 2012Q2

REPORT INFORMATION
  Report Type: 
  Country: None (occurrence: None)
  Receive Date: 20120615
  Receipt Date: 20120605
  Transmission Date: 20120825
  Serious: Yes (Hospitalization, Other)
  Sender: FDA-Public Use
  Company Number: US-ELI_LILLY_AND_COMPANY-US201206002271

PATIENT
  Age: 54 Year
  Sex: Male

DRUGS (9)
  1. HYDROCODONE [Concomitant]
  2. CYMBALTA [Suspect]
     Dosage: 60 MG, BID
  3. LYRICA [Concomitant]
     Indication: NEUROPATHY PERIPHERAL
  4. LASIX [Concomitant]
  5. ATIVAN [Concomitant]
  6. CLONIDINE [Concomitant]
  7. CYMBALTA [Suspect]
     Dosage: 60 MG, QD
  8. CYMBALTA [Suspect]
     Indication: DEPRESSION
     Dosage: 60 MG, QD
     Dates: start: 20070101
  9. TRAZODONE HCL [Concomitant]

REACTIONS (7)
  - BLOOD PRESSURE INCREASED [None]
  - INTENTIONAL DRUG MISUSE [None]
  - LOWER LIMB FRACTURE [None]
  - ROAD TRAFFIC ACCIDENT [None]
  - ROTATOR CUFF SYNDROME [None]
  - STRESS [None]
  - PAIN [None]
